FAERS Safety Report 17535147 (Version 1)
Quarter: 2020Q1

REPORT INFORMATION
  Report Type: Report from Study
  Country: None (occurrence: US)
  Receive Date: 20200313
  Receipt Date: 20200313
  Transmission Date: 20200409
  Serious: Yes (Hospitalization, Other)
  Sender: FDA-Public Use
  Company Number: US-ABBVIE-20K-163-3284278-00

PATIENT
  Age: 72 Year
  Sex: Female

DRUGS (1)
  1. HUMIRA [Suspect]
     Active Substance: ADALIMUMAB
     Indication: RHEUMATOID ARTHRITIS
     Route: 058

REACTIONS (14)
  - Insomnia [Unknown]
  - Drug ineffective [Not Recovered/Not Resolved]
  - Device issue [Unknown]
  - Rib fracture [Recovering/Resolving]
  - Pain [Not Recovered/Not Resolved]
  - Blindness [Unknown]
  - Muscle atrophy [Recovering/Resolving]
  - Cardiac failure congestive [Recovering/Resolving]
  - Rheumatoid arthritis [Unknown]
  - Mobility decreased [Recovered/Resolved]
  - Device difficult to use [Unknown]
  - Fall [Recovered/Resolved]
  - Daydreaming [Recovered/Resolved]
  - Joint injury [Recovering/Resolving]

NARRATIVE: CASE EVENT DATE: 20191231
